FAERS Safety Report 4585330-5 (Version None)
Quarter: 2005Q1

REPORT INFORMATION
  Report Type: 
  Country: None (occurrence: None)
  Receive Date: 20050214
  Receipt Date: 20041018
  Transmission Date: 20050727
  Serious: Yes (Hospitalization)
  Sender: FDA-Public Use
  Company Number: 05-106

PATIENT
  Age: 67 Year
  Sex: Female

DRUGS (12)
  1. DEXAMETHASONE [Suspect]
     Indication: MULTIPLE MYELOMA
     Dosage: 40 MG/DAY, ORAL
     Route: 048
     Dates: start: 20020922
  2. DEXAMETHASONE [Suspect]
     Indication: MYELOMA RECURRENCE
     Dosage: 40 MG/DAY, ORAL
     Route: 048
     Dates: start: 20020922
  3. GENASENSE [Suspect]
     Indication: MULTIPLE MYELOMA
     Dosage: 7 MG/KG/DAY, INTRAVENOUS
     Route: 042
     Dates: start: 20020919, end: 20030320
  4. GENASENSE [Suspect]
     Indication: MYELOMA RECURRENCE
     Dosage: 7 MG/KG/DAY, INTRAVENOUS
     Route: 042
     Dates: start: 20020919, end: 20030320
  5. ACETAMINOPHEN [Concomitant]
  6. DOCUSATE [Concomitant]
  7. HYDROMORPHINE [Concomitant]
  8. LORAZEPAM [Concomitant]
  9. METOCLOPRAMIDE [Concomitant]
  10. NYSTATIN [Concomitant]
  11. SALMETEROL XINAFOATE/FLUTICASONE PROPIONATE [Concomitant]
  12. SENNA EXTRACT [Concomitant]

REACTIONS (1)
  - LUNG ADENOCARCINOMA [None]
